FAERS Safety Report 23989513 (Version 1)
Quarter: 2024Q2

REPORT INFORMATION
  Report Type: Spontaneous
  Country: US (occurrence: US)
  Receive Date: 20240619
  Receipt Date: 20240619
  Transmission Date: 20240716
  Serious: No
  Sender: FDA-Public Use
  Company Number: US-Calliditas-2024CAL01080

PATIENT
  Age: 59 Year
  Sex: Male
  Weight: 84.3 kg

DRUGS (1)
  1. TARPEYO [Suspect]
     Active Substance: BUDESONIDE
     Indication: Haematuria
     Route: 048
     Dates: start: 20240321

REACTIONS (4)
  - Weight increased [Unknown]
  - Energy increased [Unknown]
  - Off label use [Unknown]
  - Hypertension [Unknown]
